FAERS Safety Report 4459292-5 (Version None)
Quarter: 2004Q3

REPORT INFORMATION
  Report Type: 
  Country: None (occurrence: None)
  Receive Date: 20040920
  Receipt Date: 20040920
  Transmission Date: 20050211
  Serious: Yes (Hospitalization)
  Sender: FDA-Public Use
  Company Number: None

PATIENT
  Age: 70 Year
  Sex: Male
  Weight: 89 kg

DRUGS (13)
  1. FLUDARABINE PHOSPHATE [Suspect]
     Indication: ACUTE MYELOID LEUKAEMIA
     Dosage: 70 MG IV DAILY
     Route: 042
     Dates: start: 20040607, end: 20040611
  2. MELPHALAN [Suspect]
     Dosage: 320 MG IV DAILY
     Route: 042
     Dates: start: 20040612
  3. DIFLUCAN [Concomitant]
  4. ACYCLOVIR [Concomitant]
  5. GATIFLOXACIN [Concomitant]
  6. BACTRIM [Concomitant]
  7. PREVACID [Concomitant]
  8. COUMADIN [Concomitant]
  9. PROGRAF [Concomitant]
  10. PYRIDIUM [Concomitant]
  11. AZTRIONAN [Concomitant]
  12. CIPROFAXACIN [Concomitant]
  13. CAMPATH [Suspect]
     Dosage: 20 MG DAILY
     Dates: start: 20040607, end: 20040711

REACTIONS (3)
  - CULTURE URINE POSITIVE [None]
  - ENTEROBACTER INFECTION [None]
  - PYREXIA [None]
